FAERS Safety Report 14844828 (Version 5)
Quarter: 2018Q3

REPORT INFORMATION
  Report Type: Report from Study
  Country: CA (occurrence: CA)
  Receive Date: 20180504
  Receipt Date: 20180911
  Transmission Date: 20181010
  Serious: Yes (Other)
  Sender: FDA-Public Use
  Company Number: CA-ROCHE-1922128

PATIENT
  Age: 70 Year
  Sex: Female

DRUGS (13)
  1. RITUXAN [Suspect]
     Active Substance: RITUXIMAB
     Dosage: FIFTH INFUSION
     Route: 042
     Dates: start: 20180403
  2. PREDNISONE. [Concomitant]
     Active Substance: PREDNISONE
  3. RITUXAN [Suspect]
     Active Substance: RITUXIMAB
     Dosage: INFUSION NO.6
     Route: 042
     Dates: start: 20180417
  4. ACETAMINOPHEN. [Concomitant]
     Active Substance: ACETAMINOPHEN
     Indication: PREMEDICATION
     Route: 048
  5. BISOPROLOL [Concomitant]
     Active Substance: BISOPROLOL
  6. METHYLPREDNISOLONE. [Concomitant]
     Active Substance: METHYLPREDNISOLONE
     Indication: PREMEDICATION
     Route: 042
  7. FOLIC ACID. [Concomitant]
     Active Substance: FOLIC ACID
  8. ELIQUIS [Concomitant]
     Active Substance: APIXABAN
  9. LYRICA [Concomitant]
     Active Substance: PREGABALIN
  10. RITUXAN [Suspect]
     Active Substance: RITUXIMAB
     Indication: RHEUMATOID ARTHRITIS
     Dosage: RECENT INFUSION: 03/OCT/2017
     Route: 042
     Dates: start: 20170411
  11. DIPHENHYDRAMINE HYDROCHLORIDE. [Concomitant]
     Active Substance: DIPHENHYDRAMINE HYDROCHLORIDE
     Indication: PREMEDICATION
     Route: 048
  12. METHOTREXATE. [Concomitant]
     Active Substance: METHOTREXATE
  13. PROLIA [Concomitant]
     Active Substance: DENOSUMAB

REACTIONS (13)
  - Phantom pain [Not Recovered/Not Resolved]
  - Infusion related reaction [Unknown]
  - Red blood cell sedimentation rate increased [Unknown]
  - Arthropod bite [Recovered/Resolved]
  - Insomnia [Unknown]
  - Dysgeusia [Unknown]
  - C-reactive protein increased [Unknown]
  - Hypoaesthesia [Unknown]
  - Erythema [Unknown]
  - Arthropod bite [Unknown]
  - Dysgeusia [Unknown]
  - Paraesthesia [Unknown]
  - Arthralgia [Unknown]

NARRATIVE: CASE EVENT DATE: 20170425
